FAERS Safety Report 14278128 (Version 1)
Quarter: 2017Q4

REPORT INFORMATION
  Report Type: Spontaneous
  Country: GB (occurrence: GB)
  Receive Date: 20171212
  Receipt Date: 20171212
  Transmission Date: 20180321
  Serious: Yes (Death, Hospitalization, Other)
  Sender: FDA-Public Use
  Company Number: GB-ROCHE-2008885

PATIENT
  Age: 76 Year
  Sex: Female

DRUGS (2)
  1. RITUXIMAB. [Suspect]
     Active Substance: RITUXIMAB
     Indication: PRODUCT USED FOR UNKNOWN INDICATION
     Route: 065
  2. GAZYVARO [Suspect]
     Active Substance: OBINUTUZUMAB
     Indication: PRODUCT USED FOR UNKNOWN INDICATION
     Route: 065

REACTIONS (11)
  - Condition aggravated [Unknown]
  - Drug reaction with eosinophilia and systemic symptoms [Unknown]
  - Multiple organ dysfunction syndrome [Unknown]
  - Dehydration [Unknown]
  - Ascites [Unknown]
  - Lower respiratory tract infection [Unknown]
  - Lymphocytosis [Unknown]
  - Sepsis [Fatal]
  - Pleural effusion [Fatal]
  - Respiratory failure [Unknown]
  - Pneumonia [Unknown]
